FAERS Safety Report 9606372 (Version 2)
Quarter: 2013Q4

REPORT INFORMATION
  Report Type: Spontaneous
  Country: US (occurrence: US)
  Receive Date: 20131008
  Receipt Date: 20131008
  Transmission Date: 20140711
  Serious: No
  Sender: FDA-Public Use
  Company Number: US-AMGEN-USASP2013049348

PATIENT
  Age: 78 Year
  Sex: Female
  Weight: 87.98 kg

DRUGS (7)
  1. PROLIA [Suspect]
     Indication: OSTEOPOROSIS POSTMENOPAUSAL
     Dosage: 60 MG, Q6MO
     Route: 058
     Dates: start: 20130102
  2. PRAVASTATIN [Concomitant]
     Indication: HYPERLIPIDAEMIA
     Dosage: 20 MG, QD
     Route: 048
  3. ESTRING [Concomitant]
     Indication: MENOPAUSAL SYMPTOMS
     Route: 019
  4. PRILOSEC                           /00661201/ [Concomitant]
     Indication: GASTROOESOPHAGEAL REFLUX DISEASE
     Dosage: 20 MG, QD
     Route: 048
  5. ASA [Concomitant]
     Dosage: 325 MG, QD
     Route: 048
  6. VOLTAREN                           /00372301/ [Concomitant]
     Indication: OSTEOARTHRITIS
     Dosage: 75 MG, QD
  7. HIPREX [Concomitant]
     Dosage: 195 UNK, BID
     Route: 048

REACTIONS (7)
  - Myalgia [Recovered/Resolved]
  - Malaise [Recovered/Resolved]
  - Pain [Recovered/Resolved]
  - Decreased appetite [Not Recovered/Not Resolved]
  - Hypokinesia [Not Recovered/Not Resolved]
  - Urinary tract disorder [Not Recovered/Not Resolved]
  - Asthenia [Not Recovered/Not Resolved]
